FAERS Safety Report 16046143 (Version 1)
Quarter: 2019Q1

REPORT INFORMATION
  Report Type: Spontaneous
  Country: CZ (occurrence: CZ)
  Receive Date: 20190307
  Receipt Date: 20190307
  Transmission Date: 20190418
  Serious: Yes (Other)
  Sender: FDA-Public Use
  Company Number: CZ-BRISTOL-MYERS SQUIBB COMPANY-BMS-2019-023074

PATIENT
  Age: 48 Year
  Sex: Male

DRUGS (1)
  1. IPILIMUMAB [Suspect]
     Active Substance: IPILIMUMAB
     Indication: MALIGNANT MELANOMA
     Dosage: 10 MG/KG, UNK
     Route: 065
     Dates: start: 201609, end: 201712

REACTIONS (5)
  - Hypophysitis [Recovering/Resolving]
  - Lymphangitis [Unknown]
  - Thrombophlebitis [Unknown]
  - Autoimmune pancreatitis [Unknown]
  - Prescribed overdose [Unknown]
